FAERS Safety Report 10876607 (Version 1)
Quarter: 2015Q1

REPORT INFORMATION
  Report Type: Spontaneous
  Country: US (occurrence: US)
  Receive Date: 20150301
  Receipt Date: 20150301
  Transmission Date: 20150721
  Serious: Yes (Hospitalization)
  Sender: FDA-Public Use
  Company Number: PHHY2015US022521

PATIENT
  Age: 14 Year
  Sex: Male

DRUGS (6)
  1. QUETIAPINE [Suspect]
     Active Substance: QUETIAPINE
     Indication: MOOD SWINGS
     Route: 065
  2. SERTRALINE [Suspect]
     Active Substance: SERTRALINE HYDROCHLORIDE
     Indication: MOOD SWINGS
     Route: 065
  3. PHENYTOIN. [Concomitant]
     Active Substance: PHENYTOIN
     Indication: PRODUCT USED FOR UNKNOWN INDICATION
     Route: 048
  4. MELATONIN [Concomitant]
     Active Substance: MELATONIN
     Indication: PRODUCT USED FOR UNKNOWN INDICATION
     Route: 065
  5. TEMAZEPAM. [Suspect]
     Active Substance: TEMAZEPAM
     Indication: CIRCADIAN RHYTHM SLEEP DISORDER
     Route: 065
  6. MODAFINIL. [Concomitant]
     Active Substance: MODAFINIL
     Indication: PRODUCT USED FOR UNKNOWN INDICATION
     Route: 065

REACTIONS (7)
  - Metabolic encephalopathy [Recovering/Resolving]
  - Mental status changes [Recovering/Resolving]
  - Abnormal behaviour [Recovering/Resolving]
  - Movement disorder [Recovering/Resolving]
  - Hyponatraemia [Recovering/Resolving]
  - Lethargy [Recovering/Resolving]
  - Generalised tonic-clonic seizure [Recovering/Resolving]
